FAERS Safety Report 20338849 (Version 1)
Quarter: 2022Q1

REPORT INFORMATION
  Report Type: Spontaneous
  Country: JP (occurrence: JP)
  Receive Date: 20220116
  Receipt Date: 20220116
  Transmission Date: 20220423
  Serious: Yes (Hospitalization)
  Sender: FDA-Public Use
  Company Number: JP-NOVARTISPH-NVSJ2021JP019232

PATIENT
  Age: 81 Year
  Sex: Male

DRUGS (2)
  1. ENTRESTO [Suspect]
     Active Substance: SACUBITRIL\VALSARTAN
     Indication: Cardiac failure
     Dosage: UNK
     Route: 048
     Dates: end: 202112
  2. ENTRESTO [Suspect]
     Active Substance: SACUBITRIL\VALSARTAN
     Dosage: UNK
     Route: 050

REACTIONS (5)
  - Embolic stroke [Recovering/Resolving]
  - Concomitant disease aggravated [Recovering/Resolving]
  - Hypotension [Recovering/Resolving]
  - Electrolyte imbalance [Recovering/Resolving]
  - Incorrect route of product administration [Unknown]
